FAERS Safety Report 12051015 (Version 3)
Quarter: 2016Q1

REPORT INFORMATION
  Report Type: Spontaneous
  Country: US (occurrence: US)
  Receive Date: 20160209
  Receipt Date: 20160314
  Transmission Date: 20160526
  Serious: No
  Sender: FDA-Public Use
  Company Number: US-009507513-1602USA003653

PATIENT
  Sex: Female
  Weight: 60.86 kg

DRUGS (1)
  1. NEXPLANON [Suspect]
     Active Substance: ETONOGESTREL
     Indication: CONTRACEPTION
     Dosage: 1 ROD/ 3 YEARS
     Route: 059
     Dates: start: 20151203, end: 20160104

REACTIONS (3)
  - Pain in extremity [Recovered/Resolved]
  - Mood swings [Recovered/Resolved]
  - Pain [Recovered/Resolved]
